FAERS Safety Report 5423599-5 (Version None)
Quarter: 2007Q3

REPORT INFORMATION
  Report Type: 
  Country: None (occurrence: None)
  Receive Date: 20070823
  Receipt Date: 20070815
  Transmission Date: 20080115
  Serious: Yes (Other)
  Sender: FDA-Public Use
  Company Number: US-AVENTIS-200715876US

PATIENT
  Sex: Female
  Weight: 81.81 kg

DRUGS (2)
  1. NASACORT AQ [Suspect]
     Dosage: DOSE: UNK
     Route: 045
     Dates: start: 20050101
  2. ASTELIN                            /00884002/ [Concomitant]
     Dosage: DOSE: UNK

REACTIONS (1)
  - CATARACT [None]
